FAERS Safety Report 8145251-8 (Version None)
Quarter: 2012Q1

REPORT INFORMATION
  Report Type: 
  Country: None (occurrence: None)
  Receive Date: 20120217
  Receipt Date: 20120209
  Transmission Date: 20120608
  Serious: Yes (Hospitalization)
  Sender: FDA-Public Use
  Company Number: US-B.I. PHARMACEUTICALS,INC./RIDGEFIELD-2012-BP-02606BP

PATIENT
  Age: 53 Year
  Sex: Female

DRUGS (3)
  1. DULCOLAX [Suspect]
     Indication: CONSTIPATION
     Route: 048
     Dates: start: 20120208, end: 20120208
  2. LISINOPRIL [Concomitant]
     Indication: HYPERTENSION
     Route: 048
  3. JANUVIA [Concomitant]
     Indication: DIABETES MELLITUS

REACTIONS (2)
  - RECTAL HAEMORRHAGE [None]
  - ABDOMINAL PAIN UPPER [None]
